FAERS Safety Report 10077156 (Version 2)
Quarter: 2014Q2

REPORT INFORMATION
  Report Type: Report from Study
  Country: CZ (occurrence: CZ)
  Receive Date: 20140414
  Receipt Date: 20140414
  Transmission Date: 20141212
  Serious: Yes (Hospitalization)
  Sender: FDA-Public Use
  Company Number: PHHO2012CZ007503

PATIENT
  Age: 73 Year
  Sex: Female

DRUGS (4)
  1. METFORMIN [Suspect]
     Dosage: UNK
  2. BLINDED ENALAPRIL [Suspect]
     Indication: CARDIAC FAILURE CHRONIC
     Dosage: DOUBLE BLINDED
     Route: 048
     Dates: start: 20101007, end: 20120504
  3. BLINDED LCZ696 [Suspect]
     Indication: CARDIAC FAILURE CHRONIC
     Dosage: DOUBLE BLINDED
     Route: 048
     Dates: start: 20101007, end: 20120504
  4. BLINDED NO TREATMENT RECEIVED [Suspect]
     Indication: CARDIAC FAILURE CHRONIC
     Dosage: DOUBLE BLINDED
     Route: 048
     Dates: start: 20101007, end: 20120504

REACTIONS (7)
  - Hypoglycaemia [Recovered/Resolved]
  - Diabetic gangrene [Recovered/Resolved with Sequelae]
  - Osteomyelitis [Recovering/Resolving]
  - Sepsis [Recovering/Resolving]
  - Bronchopneumonia [Recovered/Resolved]
  - Anaemia [Recovering/Resolving]
  - Liver disorder [Recovering/Resolving]
